FAERS Safety Report 10019897 (Version 1)
Quarter: 2014Q1

REPORT INFORMATION
  Report Type: Spontaneous
  Country: US (occurrence: US)
  Receive Date: 20140318
  Receipt Date: 20140318
  Transmission Date: 20141002
  Serious: Yes (Death, Hospitalization, Other)
  Sender: FDA-Public Use
  Company Number: US-GILEAD-2014-0097122

PATIENT
  Sex: Female

DRUGS (9)
  1. LETAIRIS [Suspect]
     Indication: PULMONARY ARTERIAL HYPERTENSION
     Dosage: 5 MG, QD
     Route: 048
     Dates: start: 20130129, end: 20140210
  2. ADCIRCA [Concomitant]
  3. DILTIAZEM [Concomitant]
  4. LIPITOR [Concomitant]
  5. TRILIPIX [Concomitant]
  6. LUTEIN                             /01638501/ [Concomitant]
  7. COUMADIN                           /00014802/ [Concomitant]
  8. POTASSIUM [Concomitant]
  9. OMEPRAZOLE [Concomitant]

REACTIONS (1)
  - Pulmonary arterial hypertension [Fatal]
